FAERS Safety Report 11281433 (Version 2)
Quarter: 2015Q3

REPORT INFORMATION
  Report Type: Report from Study
  Country: JP (occurrence: JP)
  Receive Date: 20150717
  Receipt Date: 20150723
  Transmission Date: 20151125
  Serious: Yes (Hospitalization)
  Sender: FDA-Public Use
  Company Number: JP-PFIZER INC-2015236778

PATIENT
  Age: 77 Year
  Sex: Male
  Weight: 43 kg

DRUGS (13)
  1. ATELEC [Concomitant]
     Active Substance: CILNIDIPINE
     Dosage: UNK
     Route: 048
     Dates: start: 201309
  2. TETRAMIDE [Concomitant]
     Active Substance: MIANSERIN
     Dosage: UNK
     Route: 048
     Dates: start: 201312
  3. FUNGUARD [Concomitant]
     Active Substance: MICAFUNGIN SODIUM
     Dosage: UNK
     Route: 041
     Dates: start: 20140428
  4. MEROPEN [Concomitant]
     Active Substance: MEROPENEM
     Dosage: UNK
     Route: 041
     Dates: start: 20140503
  5. ENTERONON-R [Concomitant]
     Active Substance: PROBIOTICS NOS
     Dosage: UNK
     Route: 048
     Dates: start: 201312
  6. TIGECYCLINE. [Suspect]
     Active Substance: TIGECYCLINE
     Indication: LIVER ABSCESS
     Dosage: 100 MG, 1X/DAY (60 MIN INFUSION)
     Route: 041
     Dates: start: 20140508, end: 20140508
  7. TIGECYCLINE. [Suspect]
     Active Substance: TIGECYCLINE
     Dosage: 50 MG, 1X/DAY (60 MIN INFUSION)
     Route: 041
     Dates: start: 20140517, end: 20140517
  8. AMLODIPINE [Concomitant]
     Active Substance: AMLODIPINE BESYLATE
     Dosage: UNK
     Route: 048
     Dates: start: 201309
  9. NITRAZEPAM [Concomitant]
     Active Substance: NITRAZEPAM
     Dosage: UNK
     Route: 048
     Dates: start: 201312
  10. TAKEPRON [Concomitant]
     Active Substance: LANSOPRAZOLE
     Dosage: UNK
     Route: 048
     Dates: start: 201309
  11. DAI-KENCHU-TO [Concomitant]
     Active Substance: MALTOSE
     Dosage: UNK
     Route: 048
     Dates: start: 201312
  12. D-SORBITOL [Concomitant]
     Dosage: UNK
     Route: 048
     Dates: start: 201312
  13. TIGECYCLINE. [Suspect]
     Active Substance: TIGECYCLINE
     Dosage: 50 MG, 2X/DAY (EVERY 12 HRS, 60 MIN INFUSION)
     Route: 041
     Dates: start: 20140509, end: 20140516

REACTIONS (1)
  - Pyrexia [Recovered/Resolved]

NARRATIVE: CASE EVENT DATE: 20140516
